FAERS Safety Report 7439247-9 (Version None)
Quarter: 2011Q2

REPORT INFORMATION
  Report Type: 
  Country: None (occurrence: None)
  Receive Date: 20110421
  Receipt Date: 20110421
  Transmission Date: 20111010
  Serious: Yes (Hospitalization)
  Sender: FDA-Public Use
  Company Number: None

PATIENT
  Age: 53 Year
  Sex: Male
  Weight: 206 kg

DRUGS (1)
  1. BUPROPION HCL [Suspect]
     Indication: DEPRESSION
     Dosage: 150MG 1 PER DAY PO
     Route: 048
     Dates: start: 20110201, end: 20110419

REACTIONS (5)
  - INSOMNIA [None]
  - PANIC ATTACK [None]
  - DYSPNOEA [None]
  - FEAR [None]
  - PARANOIA [None]
